FAERS Safety Report 8014697-0 (Version None)
Quarter: 2011Q4

REPORT INFORMATION
  Report Type: 
  Country: None (occurrence: None)
  Receive Date: 20111229
  Receipt Date: 20111215
  Transmission Date: 20120403
  Serious: Yes (Other)
  Sender: FDA-Public Use
  Company Number: GB-UCBSA-048358

PATIENT
  Age: 9 Year
  Sex: Male
  Weight: 11.3 kg

DRUGS (1)
  1. METHYLPHENIDATE HCL [Suspect]
     Dates: start: 20111006, end: 20111201

REACTIONS (2)
  - ABDOMINAL PAIN [None]
  - HAEMATURIA [None]
